FAERS Safety Report 9965375 (Version 1)
Quarter: 2014Q1

REPORT INFORMATION
  Report Type: Report from Study
  Country: US (occurrence: US)
  Receive Date: 20140305
  Receipt Date: 20140305
  Transmission Date: 20141002
  Serious: No
  Sender: FDA-Public Use
  Company Number: US-ABBVIE-13P-163-1125350-00

PATIENT
  Sex: Female

DRUGS (3)
  1. HUMIRA [Suspect]
     Indication: PRODUCT USED FOR UNKNOWN INDICATION
     Dates: start: 201306
  2. HYDROCODONE [Suspect]
     Indication: PAIN
  3. MELOXICAM [Concomitant]
     Indication: INFLAMMATION
     Dosage: DAILY

REACTIONS (2)
  - Pain [Unknown]
  - Joint swelling [Unknown]
